FAERS Safety Report 9046926 (Version 1)
Quarter: 2013Q1

REPORT INFORMATION
  Report Type: Spontaneous
  Country: TR (occurrence: TR)
  Receive Date: 20130204
  Receipt Date: 20130204
  Transmission Date: 20140127
  Serious: Yes (Hospitalization)
  Sender: FDA-Public Use
  Company Number: TR-CELGENEUS-161-21880-13013450

PATIENT
  Sex: Male

DRUGS (1)
  1. REVLIMID [Suspect]
     Indication: PRODUCT USED FOR UNKNOWN INDICATION
     Dosage: 210 MILLIGRAM
     Route: 048
     Dates: start: 20130122, end: 20130122

REACTIONS (1)
  - Overdose [Recovering/Resolving]
